FAERS Safety Report 12737908 (Version 2)
Quarter: 2016Q4

REPORT INFORMATION
  Report Type: Spontaneous
  Country: JP (occurrence: JP)
  Receive Date: 20160913
  Receipt Date: 20161006
  Transmission Date: 20170207
  Serious: Yes (Other)
  Sender: FDA-Public Use
  Company Number: JP-009507513-1609JPN005134

PATIENT
  Age: 76 Year
  Sex: Female

DRUGS (6)
  1. PROPOFOL. [Concomitant]
     Active Substance: PROPOFOL
     Indication: INDUCTION OF ANAESTHESIA
     Dosage: 5 MICRO-G/ML, DIVIDED DOSE FREQUENCY UNKNOWN
     Route: 051
  2. PROPOFOL. [Concomitant]
     Active Substance: PROPOFOL
     Indication: MAINTENANCE OF ANAESTHESIA
     Dosage: 4 MICRO-G/ML, DIVIDED DOSE FREQUENCY UNKNOWN
     Route: 051
  3. REMIFENTANIL HYDROCHLORIDE [Concomitant]
     Active Substance: REMIFENTANIL HYDROCHLORIDE
     Indication: MAINTENANCE OF ANAESTHESIA
     Dosage: 0.06 MICROG/KG/MIN
     Route: 042
  4. FENTANYL CITRATE. [Concomitant]
     Active Substance: FENTANYL CITRATE
     Indication: INDUCTION OF ANAESTHESIA
     Dosage: 100 MICROGRAMS DAILY, DIVIDED DOSE FREQUENCY UNKNOWN
     Route: 065
  5. ESLAX INTRAVENOUS 25MG/2.5ML [Suspect]
     Active Substance: ROCURONIUM BROMIDE
     Indication: NEUROMUSCULAR BLOCKING THERAPY
     Dosage: TOTAL DAILY DOSE: 30 MG, DIVIDED DOSE FREQUENCY UNKNOWN
     Route: 042
  6. REMIFENTANIL HYDROCHLORIDE [Concomitant]
     Active Substance: REMIFENTANIL HYDROCHLORIDE
     Indication: INDUCTION OF ANAESTHESIA
     Dosage: 0.15 MICROG/KG/MIN
     Route: 042

REACTIONS (2)
  - Cardiac arrest [Unknown]
  - Paroxysmal atrioventricular block [Unknown]
